FAERS Safety Report 9219849 (Version 1)
Quarter: 2013Q1

REPORT INFORMATION
  Report Type: Spontaneous
  Country: US (occurrence: None)
  Receive Date: 20120828
  Receipt Date: 20120828
  Transmission Date: 20140127
  Serious: Yes (Other)
  Sender: FDA-Public Use
  Company Number: 2011BH036814

PATIENT
  Age: 48 Year
  Sex: Female

DRUGS (8)
  1. KIOVIG LIQUID 10% SOLUTION FOR INFUSION VIAL, GLASS(IMMUNOGLOBULIN, NORMAL HUMAN)(SOLUTION FOR INFUSION) [Suspect]
     Indication: HYPOGAMMAGLOBULINAEMIA
     Dosage: 1 IN 4 WK
     Route: 042
     Dates: start: 201005
  2. BENADRYL ^WARNER-LAMBERT^/USA/(UNKNOWN) [Concomitant]
  3. ACETAMINOPHEN (PARCETAMOL) (UNKNOWN) [Concomitant]
  4. SINGULAIR [Concomitant]
  5. SPIRIVA ^PFIZER^ (UNKNOWN) [Concomitant]
  6. HERBAL PREPARATION (UNKNOWN) [Concomitant]
  7. TOPAMAX (TOPIRAMATE) (UNKNOWN) [Concomitant]
  8. ADVAIR (SERETIDE) (UNKNOWN) [Concomitant]

REACTIONS (3)
  - Dyspnoea [None]
  - Headache [None]
  - Anxiety [None]
